FAERS Safety Report 25680215 (Version 2)
Quarter: 2025Q3

REPORT INFORMATION
  Report Type: Report from Study
  Country: US (occurrence: US)
  Receive Date: 20250814
  Receipt Date: 20250910
  Transmission Date: 20251020
  Serious: No
  Sender: SUNOVION
  Company Number: US-SUMITOMO PHARMA SWITZERLAND GMBH-2025SPA001441

PATIENT
  Age: 80 Year
  Sex: Male

DRUGS (12)
  1. ORGOVYX [Suspect]
     Active Substance: RELUGOLIX
     Indication: Prostate cancer
     Dosage: 360 MG, SINGLE
     Route: 048
     Dates: start: 202411, end: 202411
  2. ORGOVYX [Suspect]
     Active Substance: RELUGOLIX
     Dosage: 120 MG, QD
     Route: 048
     Dates: start: 202411
  3. ATORVASTATIN [Concomitant]
     Active Substance: ATORVASTATIN
  4. BISOPROLOL FUMARATE [Concomitant]
     Active Substance: BISOPROLOL FUMARATE
  5. ELIQUIS [Concomitant]
     Active Substance: APIXABAN
  6. GLIPIZIDE [Concomitant]
     Active Substance: GLIPIZIDE
  7. HYALURONIC ACID [Concomitant]
     Active Substance: HYALURONIC ACID
  8. JARDIANCE [Concomitant]
     Active Substance: EMPAGLIFLOZIN
  9. METFORMIN [Concomitant]
     Active Substance: METFORMIN HYDROCHLORIDE
  10. VENLAFAXINE [Concomitant]
     Active Substance: VENLAFAXINE HYDROCHLORIDE
  11. TAMSULOSIN [Concomitant]
     Active Substance: TAMSULOSIN
  12. MAGNESIUM GLYCINATE [Concomitant]
     Active Substance: MAGNESIUM GLYCINATE

REACTIONS (7)
  - Pain [Unknown]
  - Glycosylated haemoglobin increased [Unknown]
  - Abdominal discomfort [Unknown]
  - Dyspepsia [Unknown]
  - Fatigue [Unknown]
  - Myalgia [Unknown]
  - Arthralgia [Unknown]
